FAERS Safety Report 6262275-6 (Version None)
Quarter: 2009Q3

REPORT INFORMATION
  Report Type: 
  Country: None (occurrence: None)
  Receive Date: 20090709
  Receipt Date: 20090706
  Transmission Date: 20100115
  Serious: No
  Sender: FDA-Public Use
  Company Number: US-B.I. PHARMACEUTICALS,INC./RIDGEFIELD-2009-BP-07990BP

PATIENT
  Sex: Male

DRUGS (5)
  1. FLOMAX [Suspect]
     Indication: BENIGN PROSTATIC HYPERPLASIA
     Dosage: 0.8 MG
     Route: 048
     Dates: start: 20090401
  2. CARBO-DOPA [Concomitant]
     Indication: PARKINSON'S DISEASE
  3. COMTAN [Concomitant]
     Indication: PARKINSON'S DISEASE
  4. COZAAR [Concomitant]
     Indication: HYPERTENSION
  5. DITROPAN [Concomitant]
     Indication: URINARY INCONTINENCE

REACTIONS (1)
  - URINARY INCONTINENCE [None]
